FAERS Safety Report 6753827-5 (Version None)
Quarter: 2010Q2

REPORT INFORMATION
  Report Type: 
  Country: None (occurrence: None)
  Receive Date: 20100603
  Receipt Date: 20100503
  Transmission Date: 20101027
  Serious: No
  Sender: FDA-Public Use
  Company Number: US-BAYER-201017289NA

PATIENT
  Age: 64 Year
  Sex: Male
  Weight: 100 kg

DRUGS (1)
  1. ULTRAVIST 300 [Suspect]
     Indication: COMPUTERISED TOMOGRAM ABDOMEN
     Dosage: UNIT DOSE: 100 ML
     Route: 042
     Dates: start: 20100318, end: 20100318

REACTIONS (3)
  - ERYTHEMA [None]
  - RASH [None]
  - URTICARIA [None]
